FAERS Safety Report 7110662-6 (Version None)
Quarter: 2010Q4

REPORT INFORMATION
  Report Type: 
  Country: None (occurrence: None)
  Receive Date: 20101118
  Receipt Date: 20101112
  Transmission Date: 20110411
  Serious: Yes (Hospitalization, Congenital Anomaly)
  Sender: FDA-Public Use
  Company Number: A0680320A

PATIENT
  Sex: Male

DRUGS (3)
  1. PAXIL [Suspect]
     Indication: DEPRESSION
  2. PAXIL CR [Suspect]
     Indication: DEPRESSION
  3. PRENATAL VITAMINS [Concomitant]

REACTIONS (11)
  - CEREBRAL PALSY [None]
  - CONGENITAL ANOMALY [None]
  - DRUG EXPOSURE DURING PREGNANCY [None]
  - GROSS MOTOR DELAY [None]
  - HEART DISEASE CONGENITAL [None]
  - HOLOPROSENCEPHALY [None]
  - MATERNAL DRUGS AFFECTING FOETUS [None]
  - NEONATAL PNEUMONIA [None]
  - NEONATAL RESPIRATORY DISTRESS SYNDROME [None]
  - QUADRIPLEGIA [None]
  - SEPSIS NEONATAL [None]
